FAERS Safety Report 8931496 (Version 2)
Quarter: 2013Q1

REPORT INFORMATION
  Report Type: Report from Study
  Country: DE (occurrence: DE)
  Receive Date: 20121128
  Receipt Date: 20130108
  Transmission Date: 20140127
  Serious: Yes (Other)
  Sender: FDA-Public Use
  Company Number: DE-ROCHE-1161012

PATIENT
  Sex: Female

DRUGS (4)
  1. RANIBIZUMAB [Suspect]
     Indication: AGE-RELATED MACULAR DEGENERATION
     Dosage: UNK
     Route: 050
     Dates: start: 20120413
  2. RANIBIZUMAB [Suspect]
     Dosage: UNK
     Route: 065
     Dates: start: 20120615
  3. RANIBIZUMAB [Suspect]
     Dosage: UNK
     Route: 065
     Dates: start: 20120903
  4. RANIBIZUMAB [Suspect]
     Dosage: UNK
     Route: 065
     Dates: start: 20121022, end: 20121022

REACTIONS (3)
  - Retinal cyst [Unknown]
  - Visual acuity reduced [Unknown]
  - Endophthalmitis [Recovered/Resolved]
